FAERS Safety Report 7622119-4 (Version None)
Quarter: 2011Q3

REPORT INFORMATION
  Report Type: 
  Country: None (occurrence: None)
  Receive Date: 20110720
  Receipt Date: 20110324
  Transmission Date: 20111222
  Serious: Yes (Other)
  Sender: FDA-Public Use
  Company Number: US-BAYER-2011-020944

PATIENT
  Age: 29 Year
  Sex: Female
  Weight: 81.633 kg

DRUGS (2)
  1. SYNTHROID [Concomitant]
     Dosage: UNK
     Dates: start: 19930101
  2. YASMIN [Suspect]
     Indication: CONTRACEPTION
     Dosage: 1 TABLET / DAY
     Route: 048
     Dates: start: 20030901, end: 20070401

REACTIONS (6)
  - CHOLESTEROSIS [None]
  - LIVER DISORDER [None]
  - CHOLECYSTECTOMY [None]
  - CHOLECYSTITIS CHRONIC [None]
  - CHOLELITHIASIS [None]
  - INJURY [None]
